FAERS Safety Report 6380285-5 (Version None)
Quarter: 2009Q3

REPORT INFORMATION
  Report Type: 
  Country: None (occurrence: None)
  Receive Date: 20090921
  Receipt Date: 20090907
  Transmission Date: 20100115
  Serious: Yes (Hospitalization)
  Sender: FDA-Public Use
  Company Number: 8026669

PATIENT
  Age: 68 Year
  Sex: Female

DRUGS (8)
  1. CERTOLIZUMAB PEGOL [Suspect]
     Indication: RHEUMATOID ARTHRITIS
     Dosage: 400 MG /M SC
     Route: 058
     Dates: start: 20030512, end: 20030929
  2. CERTOLIZUMAB PEGOL [Suspect]
     Indication: RHEUMATOID ARTHRITIS
     Dosage: 400 MG /M SC
     Route: 058
     Dates: start: 20031027, end: 20070904
  3. CERTOLIZUMAB PEGOL [Suspect]
     Indication: RHEUMATOID ARTHRITIS
     Dosage: 400 MG /M SC
     Route: 058
     Dates: start: 20071001
  4. METHOTREXATE [Concomitant]
  5. AMITRIPTYLINE HCL [Concomitant]
  6. COEDINE PHOSPHATE [Concomitant]
  7. WARFARIN [Concomitant]
  8. CO-AMILOFRUSE [Concomitant]

REACTIONS (7)
  - BLOOD PRESSURE SYSTOLIC INCREASED [None]
  - CELLULITIS [None]
  - DEHYDRATION [None]
  - PHOTOPHOBIA [None]
  - PNEUMONIA [None]
  - SEPSIS [None]
  - SKIN ULCER [None]
